FAERS Safety Report 22077951 (Version 2)
Quarter: 2023Q2

REPORT INFORMATION
  Report Type: Spontaneous
  Country: US (occurrence: US)
  Receive Date: 20230309
  Receipt Date: 20230524
  Transmission Date: 20230721
  Serious: Yes (Other)
  Sender: FDA-Public Use
  Company Number: US-BAYER-2023A024640

PATIENT
  Age: 39 Year
  Sex: Female
  Weight: 88.889 kg

DRUGS (4)
  1. MIRENA [Suspect]
     Active Substance: LEVONORGESTREL
     Indication: Contraception
     Dosage: 20?G/DAY
     Route: 015
     Dates: start: 202212
  2. SUMATRIPTAN [Concomitant]
     Active Substance: SUMATRIPTAN
  3. LYRICA [Concomitant]
     Active Substance: PREGABALIN
  4. AIMOVIG [Concomitant]
     Active Substance: ERENUMAB-AOOE

REACTIONS (4)
  - Rheumatoid arthritis [None]
  - Genital haemorrhage [Recovering/Resolving]
  - Joint swelling [None]
  - Arthralgia [None]
